FAERS Safety Report 7749251-9 (Version None)
Quarter: 2011Q3

REPORT INFORMATION
  Report Type: 
  Country: None (occurrence: None)
  Receive Date: 20110914
  Receipt Date: 20110909
  Transmission Date: 20111222
  Serious: Yes (Disabling)
  Sender: FDA-Public Use
  Company Number: US-PFIZER INC-2011212999

PATIENT
  Sex: Female

DRUGS (2)
  1. TOVIAZ [Suspect]
     Dosage: HALF A TABLET
     Route: 048
     Dates: start: 20110909
  2. TOVIAZ [Suspect]
     Dosage: UNK
     Route: 048
     Dates: start: 20110908

REACTIONS (8)
  - SOMNOLENCE [None]
  - OROPHARYNGEAL PAIN [None]
  - FATIGUE [None]
  - DRY MOUTH [None]
  - ABASIA [None]
  - DIZZINESS [None]
  - ABDOMINAL PAIN UPPER [None]
  - TONGUE DRY [None]
